FAERS Safety Report 13664463 (Version 1)
Quarter: 2017Q2

REPORT INFORMATION
  Report Type: Spontaneous
  Country: BR (occurrence: BR)
  Receive Date: 20170619
  Receipt Date: 20170619
  Transmission Date: 20170830
  Serious: Yes (Other)
  Sender: FDA-Public Use
  Company Number: BR-009507513-1706BRA008223

PATIENT
  Age: 69 Year
  Sex: Female

DRUGS (1)
  1. OVESTRION [Suspect]
     Active Substance: ESTRIOL
     Indication: MICTURITION DISORDER
     Dosage: UNK
     Dates: start: 20170605

REACTIONS (3)
  - Vulvovaginal burning sensation [Not Recovered/Not Resolved]
  - Product use in unapproved indication [Unknown]
  - Vulvovaginal pain [Not Recovered/Not Resolved]

NARRATIVE: CASE EVENT DATE: 20170605
